FAERS Safety Report 12310006 (Version 1)
Quarter: 2016Q2

REPORT INFORMATION
  Report Type: Spontaneous
  Country: US (occurrence: US)
  Receive Date: 20160427
  Receipt Date: 20160427
  Transmission Date: 20160815
  Serious: No
  Sender: FDA-Public Use
  Company Number: US-TEVA-649359ACC

PATIENT
  Sex: Female
  Weight: 50.85 kg

DRUGS (1)
  1. PARAGARD T 380A [Suspect]
     Active Substance: COPPER
     Indication: CONTRACEPTION
     Dates: start: 201601

REACTIONS (3)
  - Micturition urgency [Not Recovered/Not Resolved]
  - Menorrhagia [Not Recovered/Not Resolved]
  - Acne [Not Recovered/Not Resolved]
